FAERS Safety Report 5250020-2 (Version None)
Quarter: 2007Q1

REPORT INFORMATION
  Report Type: 
  Country: None (occurrence: None)
  Receive Date: 20070228
  Receipt Date: 20060208
  Transmission Date: 20070707
  Serious: No
  Sender: FDA-Public Use
  Company Number: US-GLAXOSMITHKLINE-A0590894A

PATIENT
  Age: 17 Year
  Sex: Female

DRUGS (3)
  1. LAMICTAL [Suspect]
     Dosage: 75MG TWICE PER DAY
     Route: 048
  2. ABILIFY [Concomitant]
     Dosage: 7.5MG PER DAY
  3. PROZAC [Concomitant]
     Dosage: 20MG PER DAY

REACTIONS (3)
  - GENITAL RASH [None]
  - ILL-DEFINED DISORDER [None]
  - RASH [None]
